FAERS Safety Report 14166718 (Version 1)
Quarter: 2017Q4

REPORT INFORMATION
  Report Type: Report from Study
  Country: None (occurrence: DE)
  Receive Date: 20171107
  Receipt Date: 20171107
  Transmission Date: 20180321
  Serious: Yes (Hospitalization)
  Sender: FDA-Public Use
  Company Number: DE-ABBVIE-17K-062-2152012-00

PATIENT
  Sex: Female

DRUGS (7)
  1. ESOMEPRAZOL [Concomitant]
     Active Substance: ESOMEPRAZOLE
     Indication: PRODUCT USED FOR UNKNOWN INDICATION
  2. DUODOPA [Suspect]
     Active Substance: CARBIDOPA\LEVODOPA
     Indication: PARKINSON^S DISEASE
     Dosage: MD 5.5 ML / CRD 2.6 ML/H / ED 1.0 ML
     Route: 050
     Dates: start: 20100521
  3. LEVODOPA [Concomitant]
     Active Substance: LEVODOPA
     Indication: PRODUCT USED FOR UNKNOWN INDICATION
  4. CLOZAPIN [Concomitant]
     Active Substance: CLOZAPINE
     Indication: PRODUCT USED FOR UNKNOWN INDICATION
  5. AMANTADIN [Concomitant]
     Active Substance: AMANTADINE
     Indication: PRODUCT USED FOR UNKNOWN INDICATION
  6. METOPROLOL. [Concomitant]
     Active Substance: METOPROLOL
     Indication: PRODUCT USED FOR UNKNOWN INDICATION
  7. CITALOPRAM [Concomitant]
     Active Substance: CITALOPRAM HYDROBROMIDE
     Indication: PRODUCT USED FOR UNKNOWN INDICATION

REACTIONS (2)
  - Device dislocation [Unknown]
  - Apathy [Not Recovered/Not Resolved]
